FAERS Safety Report 8778919 (Version 1)
Quarter: 2012Q4

REPORT INFORMATION
  Report Type: 
  Country: US (occurrence: US)
  Receive Date: 20120912
  Receipt Date: 20120912
  Transmission Date: 20130627
  Serious: Yes (Death)
  Sender: FDA-Public Use
  Company Number: PHEH2012US017510

PATIENT
  Age: 81 Year
  Sex: Male

DRUGS (15)
  1. EXJADE [Suspect]
     Dosage: 1750 mg (03 tablets of 500 mg and 01 tablet of 250 mg)
     Route: 048
  2. POTASSIUM [Concomitant]
  3. COUMADIN [Concomitant]
     Dosage: 04 mg, UNK
  4. LISINOPRIL [Concomitant]
     Dosage: 05 mg, UNK
  5. DIGOXIN [Concomitant]
     Dosage: 0.25 mg, UNK
  6. ASPIRIN [Concomitant]
     Dosage: 81 mg, UNK
  7. ACIDOPHILUS [Concomitant]
  8. NOVOLOG [Concomitant]
     Dosage: 100 ml, UNK
  9. TAMSULOSIN [Concomitant]
     Dosage: 0.4 mg, UNK
  10. ROPINIROLE [Concomitant]
     Dosage: 01 mg, UNK
  11. CARVEDILOL [Concomitant]
     Dosage: 3.125 mg, UNK
  12. POTASSIUM CHLORIDE [Concomitant]
  13. BUMEX [Concomitant]
     Dosage: 0.5 mg, UNK
  14. LIPITOR [Concomitant]
     Dosage: 10 mg, UNK
  15. ZOLPIDEM [Concomitant]
     Dosage: 10 mg, UNK

REACTIONS (1)
  - Death [Fatal]
